FAERS Safety Report 25904946 (Version 2)
Quarter: 2025Q4

REPORT INFORMATION
  Report Type: Spontaneous
  Country: US (occurrence: US)
  Receive Date: 20251010
  Receipt Date: 20251013
  Transmission Date: 20260118
  Serious: Yes (Other)
  Sender: BOEHRINGER INGELHEIM
  Company Number: US-Komodo Health-a23aa00000AhL8HAAV

PATIENT
  Sex: Female

DRUGS (2)
  1. HERNEXEOS [Suspect]
     Active Substance: ZONGERTINIB
     Indication: Non-small cell lung cancer
  2. HERNEXEOS [Suspect]
     Active Substance: ZONGERTINIB

REACTIONS (2)
  - Cellulitis [Not Recovered/Not Resolved]
  - Neuropathy peripheral [Not Recovered/Not Resolved]
